FAERS Safety Report 9221118 (Version 3)
Quarter: 2013Q2

REPORT INFORMATION
  Report Type: Spontaneous
  Country: US (occurrence: US)
  Receive Date: 20130409
  Receipt Date: 20130611
  Transmission Date: 20140414
  Serious: No
  Sender: FDA-Public Use
  Company Number: US-009507513-1304USA002230

PATIENT
  Age: 68 Year
  Sex: Female
  Weight: 55.33 kg

DRUGS (10)
  1. VICTRELIS [Suspect]
     Dosage: TAKE 4 CAPSULES BY MOUTH THREE TIMES A DAY WITH MEALS
     Route: 048
  2. REBETOL [Suspect]
     Route: 048
  3. PEGASYS [Suspect]
  4. LYRICA [Concomitant]
  5. METHOCARBAMOL [Concomitant]
  6. VALTREX [Concomitant]
  7. CALCIUM D (CALCIUM CARBONATE (+) CALCIUM CITRATE (+) CHOLECALCIFEROL) [Concomitant]
  8. LYSINE [Concomitant]
  9. GLUCOSAMINE [Concomitant]
  10. CHONDROITIN [Suspect]
     Route: 048

REACTIONS (9)
  - Oropharyngeal pain [Unknown]
  - Dysphonia [Unknown]
  - Weight decreased [Unknown]
  - Fatigue [Unknown]
  - Decreased appetite [Unknown]
  - Dysgeusia [Unknown]
  - Dry mouth [Unknown]
  - Asthenia [Unknown]
  - White blood cell count abnormal [Unknown]
